FAERS Safety Report 5295412-0 (Version None)
Quarter: 2007Q2

REPORT INFORMATION
  Report Type: 
  Country: None (occurrence: None)
  Receive Date: 20070412
  Receipt Date: 20070402
  Transmission Date: 20071010
  Serious: Yes (Hospitalization)
  Sender: FDA-Public Use
  Company Number: FR-PFIZER INC-2007026739

PATIENT
  Age: 69 Year
  Sex: Male

DRUGS (3)
  1. EPIRUBICIN HYDROCHLORIDE [Suspect]
     Indication: GASTRIC CANCER
     Route: 042
  2. CISPLATIN [Suspect]
     Indication: GASTRIC CANCER
     Route: 042
  3. XELODA [Suspect]
     Indication: GASTRIC CANCER
     Route: 048

REACTIONS (1)
  - FACIAL PALSY [None]
